FAERS Safety Report 15549516 (Version 13)
Quarter: 2023Q2

REPORT INFORMATION
  Report Type: Spontaneous
  Country: US (occurrence: US)
  Receive Date: 20181025
  Receipt Date: 20230512
  Transmission Date: 20230722
  Serious: Yes (Hospitalization)
  Sender: FDA-Public Use
  Company Number: US-PFIZER INC-2018432889

PATIENT
  Age: 71 Year
  Sex: Female
  Weight: 76 kg

DRUGS (13)
  1. SUTENT [Suspect]
     Active Substance: SUNITINIB MALATE
     Indication: Carcinoid tumour in the large intestine
     Dosage: 12.5 MG, 3X/DAY (12.5MG CAPSULE BY MOUTH THREE A DAY)
     Route: 048
     Dates: start: 201802, end: 2018
  2. SUTENT [Suspect]
     Active Substance: SUNITINIB MALATE
     Indication: Carcinoid syndrome
     Dosage: 37.5 MG, CYCLIC (3 CAPS EVERYDAY, 3 WEEKS ON, 1 WEEK OFF, TAKE WHOLE WITH WATER)
     Route: 048
  3. SUTENT [Suspect]
     Active Substance: SUNITINIB MALATE
     Indication: Bronchial carcinoma
     Dosage: CYCLIC, CAPSULE EVERY DAY FOR 3 WEEKS ON, 1 WEEK OFF (NOT STARTED)
     Route: 048
  4. SIMVASTATIN [Concomitant]
     Active Substance: SIMVASTATIN
     Indication: Blood cholesterol abnormal
     Dosage: 40 MG, DAILY
     Route: 048
  5. LEVOTHYROXINE [Concomitant]
     Active Substance: LEVOTHYROXINE
     Indication: Hypothyroidism
     Dosage: 0.1 MG, DAILY
     Route: 048
  6. SOMATULINE DEPOT [Concomitant]
     Active Substance: LANREOTIDE ACETATE
     Indication: Carcinoid syndrome
     Dosage: 120 MG, EVERY 4 WEEKS
  7. SOMATULINE DEPOT [Concomitant]
     Active Substance: LANREOTIDE ACETATE
     Dosage: 120 MG, EVERY 4 WEEKS
  8. SOMATULINE DEPOT [Concomitant]
     Active Substance: LANREOTIDE ACETATE
     Dosage: UNK, MONTHLY
     Dates: start: 201902
  9. VITAMIN D NOS [Concomitant]
     Active Substance: VITAMIN D NOS
     Dosage: UNK, WEEKLY (ONCE A WEEK)
  10. BUPROPION HYDROCHLORIDE [Concomitant]
     Active Substance: BUPROPION HYDROCHLORIDE
     Dosage: 150 MG, 1X/DAY
  11. TRAZODONE [Concomitant]
     Active Substance: TRAZODONE HYDROCHLORIDE
     Dosage: 50 MG, 1X/DAY
  12. OMEPRAZOLE [Concomitant]
     Active Substance: OMEPRAZOLE
     Dosage: 40 MG, AS NEEDED (WHEN NEEDED)
  13. ACETAMINOPHEN [Concomitant]
     Active Substance: ACETAMINOPHEN
     Dosage: 500 MG, AS NEEDED (WHEN NEEDED)

REACTIONS (18)
  - Oral discomfort [Recovered/Resolved]
  - Hypertension [Recovered/Resolved]
  - Asthenia [Recovering/Resolving]
  - Dizziness [Recovered/Resolved]
  - Fatigue [Recovered/Resolved]
  - Haemorrhoids [Recovered/Resolved]
  - Stomatitis [Recovered/Resolved]
  - Skin lesion [Recovered/Resolved]
  - Off label use [Unknown]
  - Drug effective for unapproved indication [Unknown]
  - Product prescribing error [Unknown]
  - Rash [Not Recovered/Not Resolved]
  - Headache [Unknown]
  - Dry skin [Recovered/Resolved]
  - Dry mouth [Unknown]
  - Abdominal pain upper [Unknown]
  - Dyspepsia [Unknown]
  - Acne [Recovered/Resolved]

NARRATIVE: CASE EVENT DATE: 20180101
